FAERS Safety Report 9098045 (Version 1)
Quarter: 2013Q1

REPORT INFORMATION
  Report Type: Spontaneous
  Country: FR (occurrence: FR)
  Receive Date: 20130212
  Receipt Date: 20130212
  Transmission Date: 20140127
  Serious: Yes (Death, Hospitalization)
  Sender: FDA-Public Use
  Company Number: FR-ELI_LILLY_AND_COMPANY-FR201302000654

PATIENT
  Age: 79 Year
  Sex: Male

DRUGS (7)
  1. PROZAC [Suspect]
     Dosage: 30 MG, QD
     Route: 048
  2. KARDEGIC [Concomitant]
     Dosage: 160 MG, QD
     Route: 048
  3. CORDARONE [Concomitant]
  4. DANTRIUM [Concomitant]
  5. DIFFU K [Concomitant]
  6. HYZAAR [Concomitant]
  7. LIORESAL [Concomitant]

REACTIONS (1)
  - Haemorrhage intracranial [Fatal]
